FAERS Safety Report 15236938 (Version 2)
Quarter: 2020Q2

REPORT INFORMATION
  Report Type: Report from Study
  Country: CN (occurrence: CN)
  Receive Date: 20180803
  Receipt Date: 20200424
  Transmission Date: 20200713
  Serious: Yes (Other)
  Sender: FDA-Public Use
  Company Number: CN-ROCHE-2160773

PATIENT

DRUGS (2)
  1. BEVACIZUMAB. [Suspect]
     Active Substance: BEVACIZUMAB
     Indication: GLIOBLASTOMA
     Route: 041
  2. TEMOZOLOMIDE. [Suspect]
     Active Substance: TEMOZOLOMIDE
     Indication: GLIOBLASTOMA
     Dosage: 150 - 200 MG/M2 FROM DAY 1 TO DAY 5 EVERY 28D AS ONE CYCLE
     Route: 048

REACTIONS (25)
  - Bone marrow failure [Unknown]
  - Cardiac dysfunction [Unknown]
  - Haemoglobin abnormal [Unknown]
  - Blood creatinine abnormal [Unknown]
  - Granulocytes abnormal [Unknown]
  - Platelet disorder [Unknown]
  - Blood urea abnormal [Unknown]
  - Arrhythmia [Unknown]
  - Hypertension [Unknown]
  - Skin disorder [Unknown]
  - White blood cell disorder [Unknown]
  - Off label use [Unknown]
  - Altered state of consciousness [Unknown]
  - Diarrhoea [Unknown]
  - Proteinuria [Unknown]
  - Haematuria [Unknown]
  - Pyrexia [Unknown]
  - Constipation [Unknown]
  - Liver injury [Unknown]
  - Vomiting [Unknown]
  - Intentional product use issue [Unknown]
  - Nausea [Unknown]
  - Neuropathy peripheral [Unknown]
  - Alopecia [Unknown]
  - Pain [Unknown]
